FAERS Safety Report 21868175 (Version 1)
Quarter: 2023Q1

REPORT INFORMATION
  Report Type: Report from Study
  Country: US (occurrence: US)
  Receive Date: 20230116
  Receipt Date: 20230116
  Transmission Date: 20230417
  Serious: Yes (Hospitalization, Other)
  Sender: FDA-Public Use
  Company Number: US-ABBVIE-4270395

PATIENT
  Sex: Female

DRUGS (1)
  1. HUMIRA [Suspect]
     Active Substance: ADALIMUMAB
     Indication: Product used for unknown indication
     Route: 058
     Dates: start: 20220615

REACTIONS (6)
  - COVID-19 [Recovering/Resolving]
  - Drug hypersensitivity [Recovered/Resolved]
  - Insomnia [Not Recovered/Not Resolved]
  - Tongue discomfort [Unknown]
  - Gastric haemorrhage [Unknown]
  - Dysphonia [Recovering/Resolving]
